FAERS Safety Report 25957836 (Version 1)
Quarter: 2025Q4

REPORT INFORMATION
  Report Type: Spontaneous
  Country: CN (occurrence: CN)
  Receive Date: 20251024
  Receipt Date: 20251024
  Transmission Date: 20260117
  Serious: Yes (Life-Threatening, Hospitalization)
  Sender: COHERUS
  Company Number: CN-SHANGHAI JUNSHI BIOSCIENCES CO., LTD.-CN2025016160

PATIENT

DRUGS (8)
  1. TORIPALIMAB [Suspect]
     Active Substance: TORIPALIMAB
     Indication: Breast cancer
     Dosage: 240 MG, EVERY 21 DAYS, CYCLE 1
     Route: 041
  2. TORIPALIMAB [Suspect]
     Active Substance: TORIPALIMAB
     Dosage: 240 MG, EVERY 21 DAYS
     Route: 041
     Dates: start: 20251002, end: 20251002
  3. PACLITAXEL [Suspect]
     Active Substance: PACLITAXEL
     Indication: Breast cancer
     Dosage: 260 MG/M2, EVERY 21 DAYS, CYCLE 1
     Route: 041
  4. PACLITAXEL [Suspect]
     Active Substance: PACLITAXEL
     Dosage: 350 MG, EVERY 21 DAYS
     Route: 041
     Dates: start: 20251002, end: 20251002
  5. SODIUM CHLORIDE [Concomitant]
     Active Substance: SODIUM CHLORIDE
     Indication: Medication dilution
     Dosage: 100 ML, EVERY 21 DAYS, CYCLE 1
     Route: 041
  6. SODIUM CHLORIDE [Concomitant]
     Active Substance: SODIUM CHLORIDE
     Dosage: 70 ML, EVERY 21 DAYS, CYCLE 1
     Route: 041
  7. SODIUM CHLORIDE [Concomitant]
     Active Substance: SODIUM CHLORIDE
     Dosage: 100 ML, EVERY 21 DAYS
     Route: 041
     Dates: start: 20251002, end: 20251002
  8. SODIUM CHLORIDE [Concomitant]
     Active Substance: SODIUM CHLORIDE
     Dosage: 70 ML, EVERY 21 DAYS
     Route: 041
     Dates: start: 20251002, end: 20251002

REACTIONS (1)
  - Myelosuppression [Recovering/Resolving]

NARRATIVE: CASE EVENT DATE: 20251009
